FAERS Safety Report 8984010 (Version 1)
Quarter: 2012Q4

REPORT INFORMATION
  Report Type: Spontaneous
  Country: BR (occurrence: None)
  Receive Date: 20121212
  Receipt Date: 20121212
  Transmission Date: 20130627
  Serious: Yes (Other)
  Sender: FDA-Public Use
  Company Number: BR-ACCORD-015508

PATIENT
  Age: 77 Year
  Sex: Female
  Weight: 60 kg

DRUGS (5)
  1. PACLITAXEL [Suspect]
     Indication: BREAST CANCER
     Route: 042
     Dates: start: 20121113, end: 20121113
  2. DEXAMETHASONE(DEXAMETHASONE) [Concomitant]
  3. DIPHENHYDRAMINE(DIPHENHYDRAMINE) [Concomitant]
  4. ONDANSETRON(ONDANSETRON) [Concomitant]
  5. RANITIDINE(RANITIDINE) [Concomitant]

REACTIONS (2)
  - Respiratory distress [None]
  - Erythema [None]
